FAERS Safety Report 21305477 (Version 2)
Quarter: 2022Q3

REPORT INFORMATION
  Report Type: Spontaneous
  Country: US (occurrence: US)
  Receive Date: 20220908
  Receipt Date: 20220915
  Transmission Date: 20221027
  Serious: Yes (Hospitalization, Other)
  Sender: FDA-Public Use
  Company Number: US-DECIPHERA PHARMACEUTICALS LLC-2022US000735

PATIENT
  Sex: Female

DRUGS (2)
  1. QINLOCK [Suspect]
     Active Substance: RIPRETINIB
     Indication: Gastrointestinal stromal tumour
     Dosage: 100 MILLIGRAM, QD
     Route: 048
     Dates: start: 20220203
  2. QINLOCK [Suspect]
     Active Substance: RIPRETINIB
     Dosage: UNK

REACTIONS (4)
  - Hip fracture [Unknown]
  - Fall [Unknown]
  - Neoplasm progression [Unknown]
  - Underdose [Unknown]

NARRATIVE: CASE EVENT DATE: 20220203
